FAERS Safety Report 10907430 (Version 1)
Quarter: 2015Q1

REPORT INFORMATION
  Report Type: Spontaneous
  Country: US (occurrence: None)
  Receive Date: 20150311
  Receipt Date: 20150311
  Transmission Date: 20150721
  Serious: Yes (Hospitalization)
  Sender: FDA-Public Use
  Company Number: US-2015CRT000003

PATIENT
  Age: 20 Year
  Sex: Female

DRUGS (1)
  1. KORLYM [Suspect]
     Active Substance: MIFEPRISTONE
     Indication: PITUITARY-DEPENDENT CUSHING^S SYNDROME
     Dosage: 4 TABLETS, QD, ORAL
     Route: 048
     Dates: start: 201310, end: 2014

REACTIONS (6)
  - Renal failure [None]
  - Fall [None]
  - Groin infection [None]
  - Cellulitis [None]
  - Localised infection [None]
  - Cardiac failure congestive [None]

NARRATIVE: CASE EVENT DATE: 201311
